FAERS Safety Report 25869884 (Version 1)
Quarter: 2025Q4

REPORT INFORMATION
  Report Type: Spontaneous
  Country: US (occurrence: US)
  Receive Date: 20251001
  Receipt Date: 20251001
  Transmission Date: 20260118
  Serious: No
  Sender: RECKITT BENCKISER
  Company Number: US-INDIVIOR US-INDV-157086-2024

PATIENT
  Sex: Female

DRUGS (3)
  1. SUBOXONE [Suspect]
     Active Substance: BUPRENORPHINE HYDROCHLORIDE\NALOXONE HYDROCHLORIDE
     Indication: Drug use disorder
     Dosage: 2 MILLIGRAM, QD
     Route: 060
  2. SUBOXONE [Suspect]
     Active Substance: BUPRENORPHINE HYDROCHLORIDE\NALOXONE HYDROCHLORIDE
     Dosage: 12 MILLIGRAM, QD
     Route: 065
  3. SUBOXONE [Suspect]
     Active Substance: BUPRENORPHINE HYDROCHLORIDE\NALOXONE HYDROCHLORIDE
     Dosage: 8 MILLIGRAM, QD
     Route: 065

REACTIONS (18)
  - Breast mass [Unknown]
  - Pulpitis dental [Unknown]
  - Dental caries [Unknown]
  - Dental caries [Unknown]
  - Dental restoration failure [Unknown]
  - Nightmare [Unknown]
  - Back pain [Unknown]
  - Initial insomnia [Unknown]
  - Constipation [Unknown]
  - Throat irritation [Unknown]
  - Dyspepsia [Unknown]
  - Toothache [Unknown]
  - Fungal foot infection [Unknown]
  - COVID-19 [Unknown]
  - Injury [Unknown]
  - Neck pain [Unknown]
  - Drug dependence [Unknown]
  - Cellulitis [Unknown]

NARRATIVE: CASE EVENT DATE: 20230101
